FAERS Safety Report 8185798-1 (Version None)
Quarter: 2012Q1

REPORT INFORMATION
  Report Type: 
  Country: None (occurrence: None)
  Receive Date: 20120305
  Receipt Date: 20120228
  Transmission Date: 20120608
  Serious: No
  Sender: FDA-Public Use
  Company Number: US-PFIZER INC-2012052970

PATIENT
  Sex: Female

DRUGS (4)
  1. TIARAMIDE HYDROCHLORIDE [Interacting]
     Indication: PAIN
     Dosage: 50 MG, AS NEEDED
     Route: 048
     Dates: start: 20090101
  2. LYRICA [Suspect]
     Indication: RHEUMATOID ARTHRITIS
     Dosage: 75 MG, 1X/DAY
     Route: 048
     Dates: start: 20120128, end: 20120215
  3. LYRICA [Interacting]
     Indication: PAIN
  4. LYRICA [Interacting]
     Indication: FIBROMYALGIA

REACTIONS (9)
  - NIGHTMARE [None]
  - DYSPEPSIA [None]
  - CHEST DISCOMFORT [None]
  - DRUG INTERACTION [None]
  - DYSPNOEA [None]
  - ABDOMINAL PAIN [None]
  - ABNORMAL DREAMS [None]
  - HEAD DISCOMFORT [None]
  - FATIGUE [None]
